FAERS Safety Report 7775839-5 (Version None)
Quarter: 2011Q3

REPORT INFORMATION
  Report Type: 
  Country: None (occurrence: None)
  Receive Date: 20110923
  Receipt Date: 20110915
  Transmission Date: 20111222
  Serious: Yes (Hospitalization, Other)
  Sender: FDA-Public Use
  Company Number: US-US-EMD SERONO, INC.-7076865

PATIENT
  Sex: Female
  Weight: 69 kg

DRUGS (1)
  1. REBIF [Suspect]
     Indication: MULTIPLE SCLEROSIS
     Route: 058
     Dates: start: 20080929

REACTIONS (4)
  - MULTIPLE SCLEROSIS RELAPSE [None]
  - LOWER RESPIRATORY TRACT INFECTION [None]
  - INFLUENZA LIKE ILLNESS [None]
  - DEPRESSION [None]
